FAERS Safety Report 5021305-X (Version None)
Quarter: 2006Q2

REPORT INFORMATION
  Report Type: 
  Country: None (occurrence: None)
  Receive Date: 20060605
  Receipt Date: 20060521
  Transmission Date: 20061013
  Serious: Yes (Hospitalization, Other)
  Sender: FDA-Public Use
  Company Number: 2006066822

PATIENT
  Age: 53 Year
  Sex: Male
  Weight: 131.5431 kg

DRUGS (9)
  1. LYRICA [Suspect]
     Indication: NEUROPATHY
     Dosage: 75 MG (75 MG, 1 IN 1 D) ORAL
     Route: 048
     Dates: start: 20060401
  2. ALL OTHER THERAPEUTIC PRODUCTS [Concomitant]
  3. ZOLOFT [Concomitant]
  4. NEPHLEX (CEFADROXIL) [Concomitant]
  5. LIPITOR [Concomitant]
  6. ASPIRIN [Concomitant]
  7. HYDROCODONE [Concomitant]
  8. ATENOLOL [Concomitant]
  9. INSULIN [Concomitant]

REACTIONS (5)
  - FATIGUE [None]
  - LETHARGY [None]
  - TREMOR [None]
  - URINARY TRACT INFECTION [None]
  - VISION BLURRED [None]
